FAERS Safety Report 10144472 (Version 2)
Quarter: 2014Q2

REPORT INFORMATION
  Report Type: Spontaneous
  Country: US (occurrence: US)
  Receive Date: 20140430
  Receipt Date: 20140520
  Transmission Date: 20141212
  Serious: Yes (Other)
  Sender: FDA-Public Use
  Company Number: US-LUNDBECK-DKLU1098957

PATIENT
  Age: 31 Year
  Sex: Female

DRUGS (2)
  1. SABRIL     (TABLET) [Suspect]
     Indication: EPILEPSY
     Route: 048
     Dates: start: 20131106
  2. SABRIL     (TABLET) [Suspect]
     Indication: EPILEPSY

REACTIONS (2)
  - Convulsion [Unknown]
  - Weight increased [Unknown]
